FAERS Safety Report 4559057-X (Version None)
Quarter: 2005Q1

REPORT INFORMATION
  Report Type: 
  Country: None (occurrence: None)
  Receive Date: 20050124
  Receipt Date: 20050112
  Transmission Date: 20050727
  Serious: Yes (Hospitalization)
  Sender: FDA-Public Use
  Company Number: JP-JNJFOC-20040607185

PATIENT
  Sex: Female
  Weight: 47 kg

DRUGS (42)
  1. REMICADE [Suspect]
  2. REMICADE [Suspect]
     Indication: RHEUMATOID ARTHRITIS
  3. RHEUMATREX [Suspect]
     Route: 049
  4. RHEUMATREX [Suspect]
     Indication: RHEUMATOID ARTHRITIS
     Route: 049
  5. PREDONIN [Concomitant]
     Route: 049
  6. PREDONIN [Concomitant]
     Route: 049
  7. CLINORIL [Concomitant]
     Indication: RHEUMATOID ARTHRITIS
     Route: 049
  8. ATOLANT [Concomitant]
  9. ATOLANT [Concomitant]
  10. DIDRONEL [Concomitant]
     Route: 049
  11. BAKTAR [Concomitant]
     Route: 049
  12. BAKTAR [Concomitant]
     Route: 049
  13. FOLIAMIN [Concomitant]
     Dosage: 5
     Route: 049
  14. GASTER D [Concomitant]
     Route: 049
  15. MUCOSTA [Concomitant]
     Route: 049
  16. BIOPRESS [Concomitant]
     Route: 049
  17. KETOPROFEN [Concomitant]
     Dosage: 5-6
     Route: 049
  18. PRIDOL [Concomitant]
     Indication: RHEUMATOID ARTHRITIS
     Route: 041
  19. PROTACOL-R [Concomitant]
     Indication: RHEUMATOID ARTHRITIS
     Route: 041
  20. TN 1001 [Concomitant]
     Indication: RHEUMATOID ARTHRITIS
     Route: 041
  21. CARBENIN [Concomitant]
     Route: 041
  22. CARBENIN [Concomitant]
     Indication: RHEUMATOID ARTHRITIS
     Route: 041
  23. ZANTAC [Concomitant]
     Route: 041
  24. VEEN-D [Concomitant]
     Route: 041
  25. VEEN-D [Concomitant]
     Route: 041
  26. VEEN-D [Concomitant]
     Route: 041
  27. VEEN-D [Concomitant]
     Route: 041
  28. VEEN-D [Concomitant]
     Indication: RHEUMATOID ARTHRITIS
     Route: 041
  29. GLYCERIN [Concomitant]
     Indication: RHEUMATOID ARTHRITIS
     Dosage: ENEMA
  30. MYSLEE [Concomitant]
     Indication: RHEUMATOID ARTHRITIS
     Route: 049
  31. SENNOSIDE [Concomitant]
     Route: 049
  32. METHYLCOOL [Concomitant]
     Route: 049
  33. D-ALPHA [Concomitant]
     Route: 049
  34. METHISTA [Concomitant]
     Route: 049
  35. ADOFEED [Concomitant]
  36. HIBRON [Concomitant]
     Route: 049
  37. TAKEPRON [Concomitant]
     Route: 049
  38. APHTASOLON [Concomitant]
  39. HACHIAZULE [Concomitant]
  40. HACHIAZULE [Concomitant]
  41. MYSER [Concomitant]
  42. FUNGIZONE [Concomitant]
     Route: 049

REACTIONS (5)
  - DYSPNOEA [None]
  - INTERSTITIAL LUNG DISEASE [None]
  - PNEUMOCYSTIS JIROVECI PNEUMONIA [None]
  - PRODUCTIVE COUGH [None]
  - PYREXIA [None]
